FAERS Safety Report 20842854 (Version 1)
Quarter: 2022Q2

REPORT INFORMATION
  Report Type: Spontaneous
  Country: SG (occurrence: SG)
  Receive Date: 20220518
  Receipt Date: 20220518
  Transmission Date: 20220721
  Serious: Yes (Other)
  Sender: FDA-Public Use
  Company Number: SG-BAXTER-2022BAX010238

PATIENT
  Age: 59 Year
  Sex: Male

DRUGS (10)
  1. DOXORUBICIN [Suspect]
     Active Substance: DOXORUBICIN
     Indication: Double hit lymphoma
     Dosage: UNK
     Route: 065
     Dates: start: 20180601, end: 20180824
  2. CYCLOPHOSPHAMIDE [Suspect]
     Active Substance: CYCLOPHOSPHAMIDE
     Indication: Double hit lymphoma
     Dosage: UNK
     Route: 065
     Dates: start: 20180601, end: 20180824
  3. IFOSFAMIDE [Suspect]
     Active Substance: IFOSFAMIDE
     Indication: Double hit lymphoma
     Dosage: UNK
     Route: 065
     Dates: start: 20181018, end: 20181110
  4. ETOPOSIDE [Suspect]
     Active Substance: ETOPOSIDE
     Indication: Double hit lymphoma
     Dosage: UNK
     Route: 065
     Dates: start: 20180601, end: 20180824
  5. ETOPOSIDE [Suspect]
     Active Substance: ETOPOSIDE
     Dosage: UNK
     Route: 065
     Dates: start: 20181018, end: 20181110
  6. PREDNISOLONE [Suspect]
     Active Substance: PREDNISOLONE
     Indication: Double hit lymphoma
     Dosage: UNK
     Route: 065
     Dates: start: 20180601, end: 20180824
  7. VINCRISTINE [Suspect]
     Active Substance: VINCRISTINE
     Indication: Double hit lymphoma
     Dosage: UNK
     Route: 065
     Dates: start: 20180601, end: 20180824
  8. CARBOPLATIN [Suspect]
     Active Substance: CARBOPLATIN
     Indication: Double hit lymphoma
     Dosage: UNK
     Route: 065
     Dates: start: 20181018, end: 20181110
  9. RITUXIMAB [Suspect]
     Active Substance: RITUXIMAB
     Indication: Double hit lymphoma
     Dosage: UNK
     Route: 065
     Dates: start: 20180601, end: 20180824
  10. RITUXIMAB [Suspect]
     Active Substance: RITUXIMAB
     Dosage: UNK
     Route: 065
     Dates: start: 20181018, end: 20181110

REACTIONS (2)
  - Double hit lymphoma [Unknown]
  - Peripheral sensory neuropathy [Not Recovered/Not Resolved]
